FAERS Safety Report 16326906 (Version 1)
Quarter: 2019Q2

REPORT INFORMATION
  Report Type: Spontaneous
  Country: US (occurrence: US)
  Receive Date: 20190517
  Receipt Date: 20190517
  Transmission Date: 20190711
  Serious: No
  Sender: FDA-Public Use
  Company Number: US-ASTRAZENECA-2019SE61950

PATIENT
  Age: 56 Year
  Sex: Female
  Weight: 123.4 kg

DRUGS (2)
  1. BYDUREON [Suspect]
     Active Substance: EXENATIDE
     Indication: TYPE 2 DIABETES MELLITUS
     Route: 058
  2. BYETTA [Suspect]
     Active Substance: EXENATIDE
     Indication: TYPE 2 DIABETES MELLITUS
     Route: 058
     Dates: end: 201805

REACTIONS (7)
  - Asthenia [Unknown]
  - Nervous system disorder [Unknown]
  - Blood cholesterol increased [Unknown]
  - Pain in extremity [Recovered/Resolved]
  - Toothache [Unknown]
  - Muscle spasms [Unknown]
  - Device leakage [Unknown]

NARRATIVE: CASE EVENT DATE: 2018
